FAERS Safety Report 8573746-1 (Version None)
Quarter: 2012Q3

REPORT INFORMATION
  Report Type: 
  Country: None (occurrence: None)
  Receive Date: 20120806
  Receipt Date: 20120730
  Transmission Date: 20120928
  Serious: Yes (Hospitalization)
  Sender: FDA-Public Use
  Company Number: US-GLAXOSMITHKLINE-A0988355A

PATIENT
  Sex: Female

DRUGS (1)
  1. AVANDIA [Suspect]
     Indication: DIABETES MELLITUS
     Dosage: 8MG PER DAY
     Route: 048
     Dates: start: 20000401, end: 20070501

REACTIONS (3)
  - MYOCARDIAL INFARCTION [None]
  - VASCULAR GRAFT [None]
  - CARDIAC FAILURE CONGESTIVE [None]
